FAERS Safety Report 5087000-6 (Version None)
Quarter: 2006Q3

REPORT INFORMATION
  Report Type: 
  Country: None (occurrence: None)
  Receive Date: 20060821
  Receipt Date: 20060809
  Transmission Date: 20061208
  Serious: Yes (Other)
  Sender: FDA-Public Use
  Company Number: 2006098338

PATIENT
  Sex: Male

DRUGS (4)
  1. EPANUTIN (PHENYTOIN SODIUM) [Suspect]
     Indication: CONVULSION
     Dosage: 350 MG (350 MG, 1 IN 1 D), ORAL
     Route: 048
  2. CO-CODAMOL (CODEINE PHOSPHATE, PARACETAMOL) [Concomitant]
  3. SIMVASTATIN [Concomitant]
  4. PLAVIX [Concomitant]

REACTIONS (3)
  - DRUG LEVEL FLUCTUATING [None]
  - PETIT MAL EPILEPSY [None]
  - TRANSIENT ISCHAEMIC ATTACK [None]
